FAERS Safety Report 14276095 (Version 1)
Quarter: 2017Q4

REPORT INFORMATION
  Report Type: Spontaneous
  Country: US (occurrence: US)
  Receive Date: 20171211
  Receipt Date: 20171211
  Transmission Date: 20180321
  Serious: Yes (Disabling, Other)
  Sender: FDA-Public Use
  Company Number: US-OTSUKA-2017_010760

PATIENT

DRUGS (2)
  1. ABILIFY [Suspect]
     Active Substance: ARIPIPRAZOLE
     Indication: SCHIZOPHRENIA
     Dosage: 30 MG, UNK
     Route: 065
     Dates: start: 2011, end: 2016
  2. ABILIFY [Suspect]
     Active Substance: ARIPIPRAZOLE
     Indication: BIPOLAR DISORDER
     Dosage: UNK
     Route: 065

REACTIONS (12)
  - Emotional distress [Unknown]
  - Prescribed overdose [Unknown]
  - Condition aggravated [Unknown]
  - Hyperphagia [Recovered/Resolved]
  - Gambling [Recovered/Resolved]
  - Disability [Unknown]
  - Pain [Unknown]
  - Anxiety [Unknown]
  - Suicidal ideation [Recovered/Resolved]
  - Injury [Unknown]
  - Suicide attempt [Recovered/Resolved]
  - Compulsive sexual behaviour [Recovered/Resolved]

NARRATIVE: CASE EVENT DATE: 2011
